FAERS Safety Report 9714115 (Version 1)
Quarter: 2013Q4

REPORT INFORMATION
  Report Type: Spontaneous
  Country: US (occurrence: US)
  Receive Date: 20131126
  Receipt Date: 20131126
  Transmission Date: 20140711
  Serious: Yes (Hospitalization)
  Sender: FDA-Public Use
  Company Number: US-GILEAD-2008-0018953

PATIENT
  Sex: Male

DRUGS (6)
  1. LETAIRIS [Suspect]
     Indication: PULMONARY ARTERIAL HYPERTENSION
     Route: 048
     Dates: start: 20070926, end: 20081101
  2. COUMADIN [Concomitant]
  3. LEXAPRO [Concomitant]
  4. SPIRONOLACTONE [Concomitant]
  5. CARDIZEM [Concomitant]
  6. NEURONTIN [Concomitant]

REACTIONS (1)
  - Fluid retention [None]
